FAERS Safety Report 6780053-6 (Version None)
Quarter: 2010Q2

REPORT INFORMATION
  Report Type: 
  Country: None (occurrence: None)
  Receive Date: 20100618
  Receipt Date: 20100608
  Transmission Date: 20101027
  Serious: Yes (Other)
  Sender: FDA-Public Use
  Company Number: AU-PFIZER INC-2010061749

PATIENT
  Sex: Female
  Weight: 119 kg

DRUGS (1)
  1. CHAMPIX [Suspect]
     Indication: SMOKING CESSATION THERAPY
     Dosage: 1 TABLET, 2X/DAY
     Route: 048
     Dates: start: 20100129, end: 20100201

REACTIONS (3)
  - HAEMORRHAGE [None]
  - INTESTINAL OBSTRUCTION [None]
  - VOMITING [None]
